FAERS Safety Report 8279632 (Version 4)
Quarter: 2013Q1

REPORT INFORMATION
  Report Type: Spontaneous
  Country: US (occurrence: US)
  Receive Date: 20111208
  Receipt Date: 20130102
  Transmission Date: 20140127
  Serious: Yes (Hospitalization, Other)
  Sender: FDA-Public Use
  Company Number: US-JNJFOC-20111201012

PATIENT
  Age: 70 Year
  Sex: Female
  Weight: 44.45 kg

DRUGS (7)
  1. XARELTO [Suspect]
     Indication: THROMBOSIS PROPHYLAXIS
     Route: 048
     Dates: start: 20111129, end: 20111201
  2. XARELTO [Suspect]
     Indication: KNEE ARTHROPLASTY
     Route: 048
     Dates: start: 20111129, end: 20111201
  3. COREG [Concomitant]
     Indication: HYPERTENSION
     Route: 065
     Dates: start: 20111129
  4. CELEBREX [Concomitant]
     Indication: PAIN
     Route: 065
     Dates: start: 20111128
  5. DOCUSATE [Concomitant]
     Indication: BOWEL MOVEMENT IRREGULARITY
     Route: 065
     Dates: start: 20111128
  6. SYNTHROID [Concomitant]
     Indication: HYPOTHYROIDISM
     Route: 065
     Dates: start: 20111129
  7. LASIX [Concomitant]
     Indication: HYPERTENSION
     Route: 065

REACTIONS (1)
  - Pulmonary embolism [Recovered/Resolved]
